FAERS Safety Report 19079646 (Version 1)
Quarter: 2021Q1

REPORT INFORMATION
  Report Type: Spontaneous
  Country: US (occurrence: US)
  Receive Date: 20210331
  Receipt Date: 20210331
  Transmission Date: 20210420
  Serious: Yes (Death)
  Sender: FDA-Public Use
  Company Number: US-AMNEAL PHARMACEUTICALS-2021-AMRX-00984

PATIENT
  Age: 88 Year
  Sex: Male

DRUGS (2)
  1. RYTARY [Suspect]
     Active Substance: CARBIDOPA\LEVODOPA
     Dosage: 2 CAPSULES, 6 /DAY (AT 6AM, 9AM, 12NOON, 3PM, 6PM AND 9PM)
     Route: 048
     Dates: end: 20200306
  2. RYTARY [Suspect]
     Active Substance: CARBIDOPA\LEVODOPA
     Indication: PRODUCT USED FOR UNKNOWN INDICATION
     Dosage: 2 CAPSULES, 7/DAY (AT 6AM, 9AM, NOON, 3PM, 6PM, 9PM, AND MIDNIGHT)
     Route: 048
     Dates: start: 20200306

REACTIONS (2)
  - Prescribed overdose [Unknown]
  - Adverse event [Fatal]

NARRATIVE: CASE EVENT DATE: 20210301
